FAERS Safety Report 6114904-5 (Version None)
Quarter: 2009Q1

REPORT INFORMATION
  Report Type: 
  Country: None (occurrence: None)
  Receive Date: 20090313
  Receipt Date: 20090305
  Transmission Date: 20090719
  Serious: Yes (Other)
  Sender: FDA-Public Use
  Company Number: PHHY2009JP08163

PATIENT
  Sex: Female
  Weight: 60 kg

DRUGS (5)
  1. ZOMETA [Suspect]
     Indication: METASTASES TO BONE
     Dosage: UNK
     Route: 042
     Dates: start: 20061214
  2. HERCEPTIN [Concomitant]
     Indication: BREAST CANCER
     Dosage: 120 MG, UNK
     Route: 042
     Dates: start: 20061212
  3. PACLITAXEL [Concomitant]
     Indication: BREAST CANCER
     Dosage: 257 MG, UNK
     Route: 042
     Dates: start: 20060110, end: 20060606
  4. DOCETAXEL [Concomitant]
     Indication: BREAST CANCER
     Dosage: 110 MG, UNK
     Route: 042
     Dates: start: 20061212, end: 20070516
  5. T.S [Concomitant]
     Indication: BREAST CANCER
     Dosage: 100 MG, UNK
     Route: 048
     Dates: start: 20070606, end: 20081223

REACTIONS (5)
  - BONE DISORDER [None]
  - METASTASES TO CENTRAL NERVOUS SYSTEM [None]
  - ORAL SURGERY [None]
  - OSTEONECROSIS [None]
  - TOOTHACHE [None]
